FAERS Safety Report 8113225-9 (Version None)
Quarter: 2012Q1

REPORT INFORMATION
  Report Type: 
  Country: None (occurrence: None)
  Receive Date: 20120203
  Receipt Date: 20120202
  Transmission Date: 20120608
  Serious: No
  Sender: FDA-Public Use
  Company Number: US-PFIZER INC-2012029164

PATIENT
  Age: 69 Year
  Sex: Male
  Weight: 104 kg

DRUGS (1)
  1. IBUPROFEN (ADVIL) [Suspect]
     Indication: DRUG TOLERANCE
     Dosage: 250 MG, 3X/DAY
     Dates: start: 20120101

REACTIONS (1)
  - EPISTAXIS [None]
